FAERS Safety Report 5670074-9 (Version None)
Quarter: 2008Q1

REPORT INFORMATION
  Report Type: 
  Country: None (occurrence: None)
  Receive Date: 20080312
  Receipt Date: 20080226
  Transmission Date: 20080703
  Serious: Yes (Death, Hospitalization)
  Sender: FDA-Public Use
  Company Number: 2007000271

PATIENT
  Age: 74 Year
  Sex: Male

DRUGS (8)
  1. ERLOTINIB (TABLET) [Suspect]
     Indication: NON-SMALL CELL LUNG CANCER
     Dosage: 150 MG (150 MG, QD), ORAL
     Route: 048
     Dates: start: 20061123, end: 20070104
  2. OXYCODONE HCL [Concomitant]
  3. MOVICOL (NULYTELY) [Concomitant]
  4. NEXIUM [Concomitant]
  5. NOVALGIN (METAMIZOLE SODIUM) [Concomitant]
  6. INSULIN [Concomitant]
  7. METOCLOPRAMID (METOCLOPRAMIDE) [Concomitant]
  8. SPIRONOLACTONE [Concomitant]

REACTIONS (7)
  - CONSTIPATION [None]
  - DEHYDRATION [None]
  - FALL [None]
  - INFECTION [None]
  - MALIGNANT NEOPLASM PROGRESSION [None]
  - NAUSEA [None]
  - VOMITING [None]
